FAERS Safety Report 5834404-7 (Version None)
Quarter: 2008Q3

REPORT INFORMATION
  Report Type: 
  Country: None (occurrence: None)
  Receive Date: 20080805
  Receipt Date: 20080724
  Transmission Date: 20090109
  Serious: Yes (Other)
  Sender: FDA-Public Use
  Company Number: US-PFIZER INC-2008049283

PATIENT
  Sex: Female
  Weight: 60 kg

DRUGS (3)
  1. CHANTIX [Suspect]
     Indication: SMOKING CESSATION THERAPY
     Route: 048
     Dates: start: 20080602, end: 20080606
  2. CHANTIX [Suspect]
     Indication: TOBACCO ABUSE
  3. VITAMIN TAB [Concomitant]

REACTIONS (7)
  - GASTROOESOPHAGEAL REFLUX DISEASE [None]
  - HAEMORRHAGE [None]
  - MALAISE [None]
  - MENSTRUATION IRREGULAR [None]
  - MUSCLE SPASMS [None]
  - NAUSEA [None]
  - VOMITING [None]
